FAERS Safety Report 9187039 (Version 1)
Quarter: 2013Q1

REPORT INFORMATION
  Report Type: Spontaneous
  Country: MX (occurrence: MX)
  Receive Date: 20130325
  Receipt Date: 20130325
  Transmission Date: 20140127
  Serious: Yes (Other)
  Sender: FDA-Public Use
  Company Number: MX-PFIZER INC-2013093244

PATIENT
  Sex: Male

DRUGS (3)
  1. DALACIN [Suspect]
     Indication: BRONCHIAL DISORDER
     Dosage: 1 DF, 2X/DAY
     Route: 048
     Dates: start: 201303, end: 20130310
  2. DALACIN [Suspect]
     Indication: INFLUENZA
  3. EXEL [Concomitant]
     Indication: ANTIINFLAMMATORY THERAPY
     Dosage: 1 DF, EVERY 12 HOURS
     Route: 048
     Dates: start: 201303

REACTIONS (13)
  - Hypertension [Unknown]
  - Epistaxis [Unknown]
  - Headache [Unknown]
  - Platelet count decreased [Unknown]
  - Bilirubin conjugated increased [Unknown]
  - Blood bilirubin increased [Unknown]
  - Aspartate aminotransferase increased [Unknown]
  - Alanine aminotransferase increased [Unknown]
  - Gamma-glutamyltransferase increased [Unknown]
  - Blood glucose increased [Unknown]
  - Abdominal pain upper [Unknown]
  - Oesophageal pain [Unknown]
  - Diarrhoea [Unknown]
